FAERS Safety Report 6321944-X (Version None)
Quarter: 2009Q3

REPORT INFORMATION
  Report Type: 
  Country: None (occurrence: None)
  Receive Date: 20090821
  Receipt Date: 20090821
  Transmission Date: 20100115
  Serious: Yes (Disabling)
  Sender: FDA-Public Use
  Company Number: None

PATIENT
  Sex: Male
  Weight: 74.8435 kg

DRUGS (3)
  1. ALDARA [Suspect]
     Indication: SKIN CANCER
     Dates: start: 20090708, end: 20090712
  2. ALDARA [Suspect]
     Indication: SKIN CANCER
     Dates: start: 20090715, end: 20090719
  3. ALDARA [Suspect]
     Indication: SKIN CANCER
     Dates: start: 20090723

REACTIONS (3)
  - DIZZINESS [None]
  - HEADACHE [None]
  - HEARING IMPAIRED [None]
